FAERS Safety Report 8720580 (Version 2)
Quarter: 2013Q4

REPORT INFORMATION
  Report Type: Report from Study
  Country: JP (occurrence: JP)
  Receive Date: 20120813
  Receipt Date: 20131108
  Transmission Date: 20140711
  Serious: Yes (Other)
  Sender: FDA-Public Use
  Company Number: JP-009507513-1208JPN005067

PATIENT
  Age: 61 Year
  Sex: Female
  Weight: 56 kg

DRUGS (14)
  1. REBETOL [Suspect]
     Indication: HEPATITIS C
     Dosage: 200 MG IN THE MORNING AND 400 MG IN THE EVENING
     Route: 048
     Dates: start: 20100615, end: 20101215
  2. FERON [Suspect]
     Indication: HEPATITIS C
     Route: 041
     Dates: start: 20100615, end: 20100618
  3. FERON [Suspect]
     Route: 041
     Dates: start: 20100619, end: 20100710
  4. FERON [Suspect]
     Route: 041
     Dates: start: 20100712, end: 20101215
  5. RISPERDAL [Concomitant]
     Indication: SCHIZOPHRENIA
     Dosage: DIVIDED DOSE FREQUENCY U
     Route: 048
  6. ROHYPNOL [Concomitant]
     Indication: SCHIZOPHRENIA
     Dosage: DIVIDED DOSE FREQUENCY U
     Route: 048
  7. RIVOTRIL [Concomitant]
     Indication: SCHIZOPHRENIA
     Dosage: DIVIDED DOSE FREQUENCY U
     Route: 048
  8. AKINETON TABLETS [Concomitant]
     Indication: RHEUMATOID ARTHRITIS
     Dosage: DIVIDED DOSE FREQUENCY U
     Route: 048
  9. TERNELIN [Concomitant]
     Indication: RHEUMATOID ARTHRITIS
     Dosage: DIVIDED DOSE FREQUENCY U
     Route: 048
  10. MAGMITT [Concomitant]
     Indication: RHEUMATOID ARTHRITIS
     Dosage: DIVIDED DOSE FREQUENCY U
     Route: 048
  11. LOXONIN [Concomitant]
     Indication: PROPHYLAXIS
     Dosage: DIVIDED DOSE FREQUENCY U
     Route: 048
     Dates: start: 20100615
  12. MERISLON [Concomitant]
     Indication: PROPHYLAXIS
     Dosage: DIVIDED DOSE FREQUENCY U
     Route: 048
     Dates: start: 20100615
  13. MUCOSTA [Concomitant]
     Indication: GASTRITIS PROPHYLAXIS
     Dosage: DIVIDED DOSE FREQUENCY U
     Route: 048
     Dates: start: 20100615
  14. CEPHADOL [Concomitant]
     Indication: PROPHYLAXIS
     Dosage: DIVIDED DOSE FREQUENCY U
     Route: 048
     Dates: start: 20100615

REACTIONS (4)
  - Neutrophil count decreased [Recovered/Resolved]
  - Insomnia [Recovered/Resolved]
  - Neutrophil count decreased [Recovered/Resolved]
  - Blood triglycerides increased [Recovered/Resolved]
